FAERS Safety Report 7611589-3 (Version None)
Quarter: 2011Q3

REPORT INFORMATION
  Report Type: 
  Country: None (occurrence: None)
  Receive Date: 20110715
  Receipt Date: 20110607
  Transmission Date: 20111222
  Serious: Yes (Other)
  Sender: FDA-Public Use
  Company Number: JP-GLAXOSMITHKLINE-B0725746A

PATIENT
  Sex: Male
  Weight: 61 kg

DRUGS (8)
  1. DORAL [Concomitant]
     Route: 048
     Dates: start: 20070101
  2. LUVOX [Concomitant]
     Route: 048
  3. LENDORMIN [Concomitant]
     Route: 048
     Dates: start: 20070801
  4. LORAZEPAM [Concomitant]
     Route: 048
  5. PAXIL [Suspect]
     Indication: PRODUCT USED FOR UNKNOWN INDICATION
     Route: 048
     Dates: start: 20070801
  6. HALCION [Concomitant]
     Route: 048
     Dates: start: 20070101
  7. LEVOTOMIN [Concomitant]
     Route: 048
     Dates: start: 20070101
  8. DESYREL [Concomitant]
     Route: 048
     Dates: start: 20070101

REACTIONS (15)
  - DIZZINESS [None]
  - HEADACHE [None]
  - HEPATIC STEATOSIS [None]
  - DYSURIA [None]
  - DIZZINESS POSTURAL [None]
  - ERECTILE DYSFUNCTION [None]
  - SOMNOLENCE [None]
  - MALAISE [None]
  - CONSTIPATION [None]
  - NAUSEA [None]
  - ABDOMINAL DISCOMFORT [None]
  - URTICARIA [None]
  - WEIGHT INCREASED [None]
  - DIARRHOEA [None]
  - BACK PAIN [None]
